FAERS Safety Report 8089919-0 (Version None)
Quarter: 2012Q1

REPORT INFORMATION
  Report Type: 
  Country: None (occurrence: None)
  Receive Date: 20120129
  Receipt Date: 20110919
  Transmission Date: 20120608
  Serious: No
  Sender: FDA-Public Use
  Company Number: US-ABBOTT-11P-163-0857098-00

PATIENT
  Sex: Female
  Weight: 62.198 kg

DRUGS (7)
  1. PREDNISONE TAB [Concomitant]
     Indication: PRODUCT USED FOR UNKNOWN INDICATION
  2. COREG [Concomitant]
     Indication: CARDIOMYOPATHY
  3. HUMIRA [Suspect]
     Indication: ANKYLOSING SPONDYLITIS
     Dates: start: 20110101, end: 20110601
  4. ISORDIL [Concomitant]
     Indication: CARDIOMYOPATHY
  5. ASPIRIN [Concomitant]
     Indication: CARDIOMYOPATHY
  6. PREVACID [Concomitant]
     Indication: GASTROOESOPHAGEAL REFLUX DISEASE
  7. ZESTRIL [Concomitant]
     Indication: CARDIOMYOPATHY

REACTIONS (2)
  - WEIGHT INCREASED [None]
  - CONSTIPATION [None]
